FAERS Safety Report 26075543 (Version 1)
Quarter: 2025Q4

REPORT INFORMATION
  Report Type: Spontaneous
  Country: US (occurrence: US)
  Receive Date: 20251121
  Receipt Date: 20251121
  Transmission Date: 20260117
  Serious: No
  Sender: VERTEX
  Company Number: US-VERTEX PHARMACEUTICALS-2025-019259

PATIENT
  Sex: Male

DRUGS (4)
  1. JOURNAVX [Interacting]
     Active Substance: SUZETRIGINE
     Indication: Pain
     Dosage: 100 MG, SINGLE (LOADING DOSE)
     Route: 048
     Dates: start: 20251010, end: 20251010
  2. JOURNAVX [Interacting]
     Active Substance: SUZETRIGINE
     Dosage: 50 MG, BID(Q12)
     Route: 048
     Dates: start: 20251011, end: 20251014
  3. JOURNAVX [Interacting]
     Active Substance: SUZETRIGINE
     Dosage: 50 MG, BID(Q12)
     Route: 048
     Dates: start: 20251111
  4. BUSPIRONE [Interacting]
     Active Substance: BUSPIRONE HYDROCHLORIDE
     Indication: Anxiety
     Dosage: 150 MG EXTENDED RELEASE TABLET,QD
     Route: 048
     Dates: start: 20251015, end: 20251015

REACTIONS (6)
  - Body temperature increased [Recovered/Resolved]
  - Abdominal discomfort [Recovered/Resolved]
  - Nasopharyngitis [Recovered/Resolved]
  - Hyperhidrosis [Recovered/Resolved]
  - Drug interaction [Recovered/Resolved]
  - Off label use [Unknown]

NARRATIVE: CASE EVENT DATE: 20251010
